FAERS Safety Report 5523522-9 (Version None)
Quarter: 2007Q4

REPORT INFORMATION
  Report Type: 
  Country: None (occurrence: None)
  Receive Date: 20071119
  Receipt Date: 20071119
  Transmission Date: 20080405
  Serious: Yes (Other)
  Sender: FDA-Public Use
  Company Number: None

PATIENT
  Sex: Female
  Weight: 63.2314 kg

DRUGS (3)
  1. CIPROFLOXACIN HCL [Suspect]
     Indication: CYSTITIS
     Dosage: 1 PILL TWICE DAILY PO
     Route: 048
     Dates: start: 20071105, end: 20071107
  2. ORTHO TRI-CYCLEN LO [Concomitant]
  3. PYRIDIUM [Concomitant]

REACTIONS (6)
  - APATHY [None]
  - BALANCE DISORDER [None]
  - DISSOCIATION [None]
  - HYPOAESTHESIA [None]
  - NAUSEA [None]
  - SOMNOLENCE [None]
